FAERS Safety Report 7678519-X (Version None)
Quarter: 2011Q3

REPORT INFORMATION
  Report Type: 
  Country: None (occurrence: None)
  Receive Date: 20110811
  Receipt Date: 20110728
  Transmission Date: 20111222
  Serious: Yes (Other)
  Sender: FDA-Public Use
  Company Number: DE-GENENTECH-322730

PATIENT
  Sex: Female

DRUGS (2)
  1. XOLAIR [Suspect]
     Indication: ASTHMA
     Dosage: UNK MG, Q2W
     Route: 058
     Dates: start: 20070101, end: 20110331
  2. XOLAIR [Suspect]
     Dosage: UNK MG, Q2W
     Route: 058
     Dates: start: 20110331

REACTIONS (1)
  - MOUTH HAEMORRHAGE [None]
